FAERS Safety Report 14112554 (Version 1)
Quarter: 2017Q4

REPORT INFORMATION
  Report Type: Report from Study
  Country: US (occurrence: US)
  Receive Date: 20171020
  Receipt Date: 20171020
  Transmission Date: 20180321
  Serious: No
  Sender: FDA-Public Use
  Company Number: US-AMGEN-USASL2017156811

PATIENT
  Age: 42 Year
  Sex: Male

DRUGS (1)
  1. ENBREL [Suspect]
     Active Substance: ETANERCEPT
     Indication: RHEUMATOID ARTHRITIS
     Dosage: 50 MG, QWK
     Route: 065
     Dates: start: 201709

REACTIONS (6)
  - Drug effect incomplete [Unknown]
  - Injection site injury [Recovered/Resolved]
  - Injection site rash [Recovered/Resolved]
  - Injection site haemorrhage [Unknown]
  - Wrong technique in product usage process [Unknown]
  - Injection site pain [Recovered/Resolved]

NARRATIVE: CASE EVENT DATE: 2017
